FAERS Safety Report 4720826-4 (Version None)
Quarter: 2005Q3

REPORT INFORMATION
  Report Type: 
  Country: None (occurrence: None)
  Receive Date: 20050720
  Receipt Date: 20050706
  Transmission Date: 20060218
  Serious: Yes (Other)
  Sender: FDA-Public Use
  Company Number: 2005S1005862

PATIENT
  Age: 40 Year
  Sex: Male

DRUGS (6)
  1. LEXAPRO [Suspect]
     Indication: OBSESSIVE-COMPULSIVE DISORDER
     Dosage: 15 MG; QD; PO
     Route: 048
     Dates: start: 20050301
  2. LEXAPRO [Suspect]
     Indication: OBSESSIVE-COMPULSIVE DISORDER
     Dosage: 30 MG; QD; PO
     Route: 048
     Dates: start: 20030101, end: 20050301
  3. CLOZAPINE [Suspect]
     Indication: THINKING ABNORMAL
     Dosage: 50 MG; QD; PO
     Route: 048
     Dates: start: 20050301
  4. CLOZAPINE [Suspect]
     Indication: THINKING ABNORMAL
     Dosage: SEE IMAGE PO
     Route: 048
     Dates: start: 20030101, end: 20050301
  5. CLOZAPINE [Suspect]
     Indication: THINKING ABNORMAL
     Dosage: SEE IMAGE PO
     Route: 048
     Dates: start: 20050301
  6. LORAZEPAM [Concomitant]

REACTIONS (1)
  - TARDIVE DYSKINESIA [None]
